FAERS Safety Report 20634733 (Version 1)
Quarter: 2022Q1

REPORT INFORMATION
  Report Type: Spontaneous
  Country: US (occurrence: US)
  Receive Date: 20220325
  Receipt Date: 20220325
  Transmission Date: 20220423
  Serious: Yes (Hospitalization)
  Sender: FDA-Public Use
  Company Number: US-JNJFOC-20220334312

PATIENT
  Age: 21 Year
  Sex: Male

DRUGS (1)
  1. IBUPROFEN [Suspect]
     Active Substance: IBUPROFEN
     Indication: Headache
     Route: 065

REACTIONS (8)
  - Mucosal erosion [Recovering/Resolving]
  - Conjunctival hyperaemia [Recovering/Resolving]
  - Photophobia [Recovering/Resolving]
  - Dermatitis bullous [Recovering/Resolving]
  - Cough [Recovering/Resolving]
  - Malaise [Recovering/Resolving]
  - Respiratory tract congestion [Recovering/Resolving]
  - Oesophagitis [Recovering/Resolving]
